FAERS Safety Report 11082964 (Version 1)
Quarter: 2015Q2

REPORT INFORMATION
  Report Type: Spontaneous
  Country: US (occurrence: US)
  Receive Date: 20150501
  Receipt Date: 20150501
  Transmission Date: 20150821
  Serious: No
  Sender: FDA-Public Use
  Company Number: US-ABBVIE-14P-163-1288016-00

PATIENT
  Age: 84 Year
  Sex: Male
  Weight: 74.91 kg

DRUGS (7)
  1. ANDROGEL [Suspect]
     Active Substance: TESTOSTERONE
     Route: 065
     Dates: start: 201312, end: 201403
  2. ANDROGEL [Suspect]
     Active Substance: TESTOSTERONE
     Dosage: 40.5MG ON ALTERNATING DAYS WITH 60.75MG
     Route: 065
     Dates: start: 201403, end: 201406
  3. STATIN [Concomitant]
     Active Substance: UNSPECIFIED INGREDIENT
     Indication: BLOOD CHOLESTEROL INCREASED
  4. ANDROGEL [Suspect]
     Active Substance: TESTOSTERONE
     Dosage: 20.25MG ON ALTERNATING DAYS WITH 40.5MG
     Route: 065
     Dates: start: 20140912
  5. ANDROGEL [Suspect]
     Active Substance: TESTOSTERONE
     Route: 065
     Dates: start: 201406, end: 201409
  6. LEVOTHYROXINE [Concomitant]
     Active Substance: LEVOTHYROXINE
     Indication: HYPOTHYROIDISM
  7. ANDROGEL [Suspect]
     Active Substance: TESTOSTERONE
     Indication: BLOOD TESTOSTERONE DECREASED
     Route: 065
     Dates: start: 201312, end: 201403

REACTIONS (1)
  - Blood testosterone increased [Not Recovered/Not Resolved]

NARRATIVE: CASE EVENT DATE: 201409
